FAERS Safety Report 11579538 (Version 2)
Quarter: 2015Q4

REPORT INFORMATION
  Report Type: Spontaneous
  Country: US (occurrence: US)
  Receive Date: 20150930
  Receipt Date: 20151005
  Transmission Date: 20160304
  Serious: No
  Sender: FDA-Public Use
  Company Number: CHPA2015US011406

PATIENT
  Sex: Male

DRUGS (1)
  1. VOLTAREN [Suspect]
     Active Substance: DICLOFENAC SODIUM
     Indication: COMPLEX REGIONAL PAIN SYNDROME
     Dosage: UNK, 3 TO 4 TIMES A DAY
     Route: 061
     Dates: start: 201508

REACTIONS (5)
  - Therapeutic response unexpected [Unknown]
  - Wrong technique in product usage process [Unknown]
  - Pain in extremity [Not Recovered/Not Resolved]
  - Product use issue [Unknown]
  - Disease recurrence [Unknown]

NARRATIVE: CASE EVENT DATE: 201508
